FAERS Safety Report 9369719 (Version 1)
Quarter: 2013Q2

REPORT INFORMATION
  Report Type: Spontaneous
  Country: US (occurrence: US)
  Receive Date: 20130626
  Receipt Date: 20130626
  Transmission Date: 20140414
  Serious: Yes (Hospitalization, Other)
  Sender: FDA-Public Use
  Company Number: US-MYLANLABS-2013S1006447

PATIENT
  Age: 56 Year
  Sex: Female
  Weight: 64.41 kg

DRUGS (5)
  1. OMEPRAZOLE DELAYED-RELEASE CAPSULES, USP [Suspect]
     Indication: GASTROOESOPHAGEAL REFLUX DISEASE
     Route: 048
     Dates: start: 2010, end: 20130319
  2. COREG [Concomitant]
  3. CATAPRES [Concomitant]
  4. VICODIN [Concomitant]
     Indication: PAIN
  5. PERCOCET [Concomitant]
     Indication: PAIN

REACTIONS (1)
  - Pancreatitis [Recovered/Resolved]
